FAERS Safety Report 9502044 (Version 1)
Quarter: 2013Q3

REPORT INFORMATION
  Report Type: Spontaneous
  Country: NO (occurrence: NO)
  Receive Date: 20130905
  Receipt Date: 20130905
  Transmission Date: 20140515
  Serious: Yes (Hospitalization)
  Sender: FDA-Public Use
  Company Number: NO-WATSON-2013-16056

PATIENT
  Age: 50 Year
  Sex: Male

DRUGS (2)
  1. METFORMIN HYDROCHLORIDE (UNKNOWN) [Suspect]
     Indication: DIABETES MELLITUS
     Dosage: UNK, UNKNOWN
     Route: 065
  2. ONGLYZA [Suspect]
     Indication: DIABETES MELLITUS
     Dosage: UNK, UNKNOWN
     Route: 065

REACTIONS (2)
  - Acidosis [Unknown]
  - Renal disorder [Unknown]
